FAERS Safety Report 9006756 (Version 1)
Quarter: 2013Q1

REPORT INFORMATION
  Report Type: Spontaneous
  Country: US (occurrence: US)
  Receive Date: 20130110
  Receipt Date: 20130110
  Transmission Date: 20140127
  Serious: No
  Sender: FDA-Public Use
  Company Number: US-009507513-1301USA002815

PATIENT
  Sex: Female

DRUGS (1)
  1. DULERA [Suspect]
     Indication: PROPHYLAXIS
     Dosage: 2 DF, QAM
     Route: 049
     Dates: start: 2011

REACTIONS (4)
  - Drug dose omission [Unknown]
  - Incorrect dose administered [Unknown]
  - Product quality issue [Unknown]
  - No adverse event [Unknown]
